FAERS Safety Report 23819744 (Version 1)
Quarter: 2024Q2

REPORT INFORMATION
  Report Type: Spontaneous
  Country: US (occurrence: US)
  Receive Date: 20240506
  Receipt Date: 20240506
  Transmission Date: 20240715
  Serious: Yes (Hospitalization)
  Sender: FDA-Public Use
  Company Number: US-LUOXIN-LUX-2024-US-LIT-00014

PATIENT
  Age: 4 Week
  Sex: Female

DRUGS (3)
  1. ALBUTEROL SULFATE [Suspect]
     Active Substance: ALBUTEROL SULFATE
     Indication: Sleep apnoea syndrome
  2. AMPICILLIN [Concomitant]
     Active Substance: AMPICILLIN
     Indication: Sepsis
  3. GENTAMICIN [Concomitant]
     Active Substance: GENTAMICIN
     Indication: Sepsis

REACTIONS (1)
  - Drug ineffective [Unknown]
